FAERS Safety Report 13659369 (Version 1)
Quarter: 2017Q2

REPORT INFORMATION
  Report Type: Spontaneous
  Country: US (occurrence: US)
  Receive Date: 20170616
  Receipt Date: 20170616
  Transmission Date: 20170830
  Serious: Yes (Other)
  Sender: FDA-Public Use
  Company Number: US-TORRENT

PATIENT
  Age: 64 Year
  Sex: Female

DRUGS (5)
  1. BIVALIRUDIN. [Concomitant]
     Active Substance: BIVALIRUDIN
  2. TICAGRELOR [Concomitant]
     Active Substance: TICAGRELOR
  3. ACETYLSALICYLIC ACID [Concomitant]
     Active Substance: ASPIRIN
  4. CLOPIDOGREL [Suspect]
     Active Substance: CLOPIDOGREL BISULFATE
  5. HEPARIN [Concomitant]
     Active Substance: HEPARIN SODIUM

REACTIONS (1)
  - Vascular stent thrombosis [Recovered/Resolved]
